FAERS Safety Report 5140936-X (Version None)
Quarter: 2006Q4

REPORT INFORMATION
  Report Type: 
  Country: None (occurrence: None)
  Receive Date: 20061025
  Receipt Date: 20061025
  Transmission Date: 20070319
  Serious: Yes (Other)
  Sender: FDA-Public Use
  Company Number: None

PATIENT
  Age: 66 Year
  Sex: Male
  Weight: 99.3377 kg

DRUGS (13)
  1. MORPHINE [Suspect]
  2. DIAZEPAM [Suspect]
  3. ASPIRIN [Concomitant]
  4. TICLID [Concomitant]
  5. SIMVASTATIN [Concomitant]
  6. HYDROCHLOROTHIAZIDE [Concomitant]
  7. ATENOLOL [Concomitant]
  8. FINASTERIDE [Concomitant]
  9. GLIPIZIDE [Concomitant]
  10. OMEPRAZOLE [Concomitant]
  11. TERAZOSIN HCL [Concomitant]
  12. ROSIGLITAZONE [Concomitant]
  13. AMLODIPINE [Concomitant]

REACTIONS (1)
  - LOSS OF CONSCIOUSNESS [None]
